FAERS Safety Report 21946024 (Version 2)
Quarter: 2023Q1

REPORT INFORMATION
  Report Type: Report from Study
  Country: US (occurrence: US)
  Receive Date: 20230202
  Receipt Date: 20230330
  Transmission Date: 20230417
  Serious: Yes (Other)
  Sender: FDA-Public Use
  Company Number: US-ABBVIE-4291740

PATIENT
  Age: 62 Year
  Sex: Female

DRUGS (1)
  1. HUMIRA [Suspect]
     Active Substance: ADALIMUMAB
     Indication: Psoriatic arthropathy
     Route: 058

REACTIONS (6)
  - Osteonecrosis [Not Recovered/Not Resolved]
  - Dental caries [Not Recovered/Not Resolved]
  - Dysphonia [Unknown]
  - Cartilage injury [Unknown]
  - Gingival erythema [Not Recovered/Not Resolved]
  - Ligament rupture [Unknown]

NARRATIVE: CASE EVENT DATE: 20230127
